FAERS Safety Report 13134709 (Version 2)
Quarter: 2017Q1

REPORT INFORMATION
  Report Type: Spontaneous
  Country: US (occurrence: US)
  Receive Date: 20170120
  Receipt Date: 20170123
  Transmission Date: 20170428
  Serious: Yes (Other)
  Sender: FDA-Public Use
  Company Number: US-UNITED THERAPEUTICS-UNT-2017-000396

PATIENT
  Age: 5 Year
  Sex: Male

DRUGS (4)
  1. DILAUDID [Concomitant]
     Active Substance: HYDROMORPHONE HYDROCHLORIDE
     Indication: PRODUCT USED FOR UNKNOWN INDICATION
  2. UNITUXIN [Suspect]
     Active Substance: DINUTUXIMAB
     Indication: NEUROBLASTOMA
     Dosage: UNK
     Route: 041
  3. GM-CSF [Suspect]
     Active Substance: GRANULOCYTE-MACROPHAGE COLONY-STIMULATING FACTOR
     Indication: NEUROBLASTOMA
  4. INTERLEUKIN-2 [Suspect]
     Active Substance: ALDESLEUKIN
     Indication: NEUROBLASTOMA

REACTIONS (12)
  - Urticaria [Unknown]
  - Urine analysis abnormal [Unknown]
  - Urine output decreased [Unknown]
  - Cough [Unknown]
  - Tachycardia [Recovered/Resolved]
  - Nausea [Unknown]
  - Tachypnoea [Recovered/Resolved]
  - Constipation [Unknown]
  - Pyrexia [Unknown]
  - Transfusion [Unknown]
  - Abdominal pain [Unknown]
  - Vomiting [Unknown]
